FAERS Safety Report 5980945-1 (Version None)
Quarter: 2008Q4

REPORT INFORMATION
  Report Type: 
  Country: None (occurrence: None)
  Receive Date: 20081202
  Receipt Date: 20081202
  Transmission Date: 20090506
  Serious: Yes (Death)
  Sender: FDA-Public Use
  Company Number: None

PATIENT
  Sex: Female
  Weight: 64.8 kg

DRUGS (9)
  1. TEMOZOLOMIDE [Suspect]
     Indication: GLIOBLASTOMA MULTIFORME
     Dosage: 85MG DAILY X 28 DAYS PO
     Route: 048
     Dates: start: 20080919, end: 20081112
  2. BEVACIZUMAB [Suspect]
     Indication: GLIOBLASTOMA MULTIFORME
     Dosage: 654MG Q 2 WEEKS IV
     Route: 042
     Dates: start: 20080919
  3. BEVACIZUMAB [Suspect]
     Indication: GLIOBLASTOMA MULTIFORME
     Dosage: 654MG Q 2 WEEKS IV
     Route: 042
     Dates: start: 20081003
  4. BEVACIZUMAB [Suspect]
     Indication: GLIOBLASTOMA MULTIFORME
     Dosage: 654MG Q 2 WEEKS IV
     Route: 042
     Dates: start: 20081016
  5. BEVACIZUMAB [Suspect]
     Indication: GLIOBLASTOMA MULTIFORME
     Dosage: 654MG Q 2 WEEKS IV
     Route: 042
     Dates: start: 20081031
  6. DEXAMETHASONE [Concomitant]
  7. KEPPRA [Concomitant]
  8. ZANTAC [Concomitant]
  9. LISINOPRIL [Concomitant]

REACTIONS (2)
  - GLIOBLASTOMA MULTIFORME [None]
  - MALIGNANT NEOPLASM PROGRESSION [None]
